FAERS Safety Report 19540920 (Version 1)
Quarter: 2021Q3

REPORT INFORMATION
  Report Type: Spontaneous
  Country: US (occurrence: US)
  Receive Date: 20210714
  Receipt Date: 20210714
  Transmission Date: 20211014
  Serious: Yes (Hospitalization)
  Sender: FDA-Public Use
  Company Number: None

PATIENT
  Sex: Male

DRUGS (7)
  1. DIPHENHYDRAM [Concomitant]
  2. TYLENOL PM [Concomitant]
     Active Substance: ACETAMINOPHEN\DIPHENHYDRAMINE
  3. FISH OIL [Concomitant]
     Active Substance: FISH OIL
  4. BLUCO/CHONDR [Concomitant]
  5. THERAGRAN?M [Concomitant]
     Active Substance: VITAMINS
  6. IMIQUIMOD. [Concomitant]
     Active Substance: IMIQUIMOD
  7. REPATHA [Suspect]
     Active Substance: EVOLOCUMAB
     Indication: HYPERLIPIDAEMIA
     Dosage: ?          OTHER FREQUENCY:Q 2 WKS;?
     Route: 058
     Dates: start: 20190606

REACTIONS (2)
  - Intestinal obstruction [None]
  - Therapy interrupted [None]
